FAERS Safety Report 15390781 (Version 1)
Quarter: 2018Q3

REPORT INFORMATION
  Report Type: Spontaneous
  Country: US (occurrence: US)
  Receive Date: 20180917
  Receipt Date: 20180917
  Transmission Date: 20181010
  Serious: No
  Sender: FDA-Public Use
  Company Number: US-SA-2018SA256126

PATIENT
  Age: 40 Year
  Sex: Female

DRUGS (1)
  1. ALLEGRA?D 24 HOUR [Suspect]
     Active Substance: FEXOFENADINE HYDROCHLORIDE\PSEUDOEPHEDRINE HYDROCHLORIDE
     Indication: HYPERSENSITIVITY
     Dosage: CONSUMER TOOK THE ALLEGRA D 24HR ONCE ON SUNDAY AROUND 6:30
     Route: 065

REACTIONS (3)
  - Insomnia [Unknown]
  - Anxiety [Unknown]
  - Nervousness [Unknown]
